FAERS Safety Report 14080188 (Version 1)
Quarter: 2017Q4

REPORT INFORMATION
  Report Type: Spontaneous
  Country: US (occurrence: US)
  Receive Date: 20171012
  Receipt Date: 20171012
  Transmission Date: 20180321
  Serious: No
  Sender: FDA-Public Use
  Company Number: US-MYLANLABS-2017M1031241

PATIENT
  Age: 65 Year
  Sex: Female
  Weight: 56.24 kg

DRUGS (11)
  1. PACERONE [Concomitant]
     Active Substance: AMIODARONE HYDROCHLORIDE
     Indication: ATRIAL FIBRILLATION
     Dosage: 200 MG, QD
     Route: 048
     Dates: start: 201702
  2. PROTONIX [Concomitant]
     Active Substance: PANTOPRAZOLE SODIUM
     Indication: OESOPHAGITIS
     Dosage: 40 MG, BID
     Route: 048
     Dates: start: 201606
  3. ALBUTEROL. [Concomitant]
     Active Substance: ALBUTEROL
     Indication: ASTHMA
     Dosage: 2 PUFFS QID, PRN
     Route: 055
     Dates: start: 1970
  4. IMODIUM [Concomitant]
     Active Substance: LOPERAMIDE HYDROCHLORIDE
     Indication: DUMPING SYNDROME
     Dosage: 16 MG, QD
     Route: 048
     Dates: start: 200504
  5. MORPHINE [Concomitant]
     Active Substance: MORPHINE
     Indication: PAIN
     Dosage: 30 MG, PRN
     Route: 048
     Dates: start: 2005
  6. CARBAMAZEPINE. [Concomitant]
     Active Substance: CARBAMAZEPINE
     Indication: TRIGEMINAL NEURALGIA
     Dosage: 200 MG, QID
     Route: 048
     Dates: start: 200201
  7. XARELTO [Concomitant]
     Active Substance: RIVAROXABAN
     Indication: ATRIAL FIBRILLATION
     Dosage: UNK, QD
     Route: 048
     Dates: start: 201704
  8. FENTANYL TRANSDERMAL SYSTEM [Suspect]
     Active Substance: FENTANYL
     Indication: PAIN
     Dosage: 1 DF, QH  Q72H
     Route: 062
     Dates: start: 20170518
  9. VITAMIN B12 [Concomitant]
     Active Substance: CYANOCOBALAMIN
     Indication: SUPPLEMENTATION THERAPY
     Dosage: UNK, BIWEEKLY
     Route: 030
  10. VITAMIN D3 [Concomitant]
     Active Substance: CHOLECALCIFEROL
     Indication: MEDICAL DIET
     Dosage: 5000 IU, QD
     Route: 048
     Dates: start: 201604
  11. OPIUM TINCTURE [Concomitant]
     Active Substance: MORPHINE
     Indication: DUMPING SYNDROME
     Dosage: 40 MG/ML, QOD
     Route: 048
     Dates: start: 2010

REACTIONS (2)
  - Hyperhidrosis [Recovered/Resolved]
  - Sticky skin [Recovered/Resolved]

NARRATIVE: CASE EVENT DATE: 20170521
